FAERS Safety Report 4959577-X (Version None)
Quarter: 2006Q1

REPORT INFORMATION
  Report Type: 
  Country: None (occurrence: None)
  Receive Date: 20060331
  Receipt Date: 20051205
  Transmission Date: 20060701
  Serious: Yes (Hospitalization, Other)
  Sender: FDA-Public Use
  Company Number: US-MERCK-0512USA00816

PATIENT
  Age: 59 Year
  Sex: Male
  Weight: 93 kg

DRUGS (11)
  1. VIOXX [Suspect]
     Indication: ARTHRITIS
     Route: 048
     Dates: start: 20010101, end: 20041017
  2. VIOXX [Suspect]
     Route: 048
     Dates: start: 20010101, end: 20041017
  3. SKELAXIN [Concomitant]
     Indication: PAIN
     Route: 065
     Dates: start: 20011101, end: 20020701
  4. HYDROCODONE BITARTRATE [Concomitant]
     Indication: ARTHRITIS
     Route: 065
     Dates: start: 20030201, end: 20030901
  5. ULTRACET [Concomitant]
     Indication: ARTHRITIS
     Route: 065
     Dates: start: 20030101, end: 20041201
  6. GLUCOTROL [Concomitant]
     Indication: DIABETES MELLITUS
     Route: 065
  7. CEPHALEXIN [Concomitant]
     Indication: BACTERIAL INFECTION
     Route: 065
  8. BETAMETHASONE [Concomitant]
     Indication: ARTHRITIS
     Route: 065
     Dates: start: 20030301, end: 20030401
  9. NEURONTIN [Concomitant]
     Indication: ARTHRITIS
     Route: 065
     Dates: start: 20030101, end: 20030101
  10. HYDRALAZINE [Concomitant]
     Indication: HYPERTENSION
     Route: 065
     Dates: start: 20030101
  11. HYDRALAZINE [Concomitant]
     Route: 065
     Dates: start: 20030101

REACTIONS (6)
  - ANXIETY [None]
  - BACK PAIN [None]
  - CEREBROVASCULAR ACCIDENT [None]
  - DIABETES MELLITUS [None]
  - FULL BLOOD COUNT DECREASED [None]
  - HYPERTENSION [None]
